FAERS Safety Report 4595962-6 (Version None)
Quarter: 2005Q1

REPORT INFORMATION
  Report Type: 
  Country: None (occurrence: None)
  Receive Date: 20050302
  Receipt Date: 20050218
  Transmission Date: 20050727
  Serious: Yes (Other)
  Sender: FDA-Public Use
  Company Number: DE-JNJFOC-20050204763

PATIENT
  Age: 53 Year
  Sex: Female

DRUGS (7)
  1. RISPERDAL [Suspect]
  2. EUNERPAN [Suspect]
     Indication: DRUG USE FOR UNKNOWN INDICATION
  3. ARELIX [Suspect]
     Indication: DRUG USE FOR UNKNOWN INDICATION
  4. DIAZEPAM [Concomitant]
  5. VITAMIN B-12 [Concomitant]
  6. DREISAFER [Concomitant]
  7. DREISAFER [Concomitant]

REACTIONS (1)
  - ELECTROCARDIOGRAM QT PROLONGED [None]
